FAERS Safety Report 11432203 (Version 8)
Quarter: 2016Q3

REPORT INFORMATION
  Report Type: Report from Study
  Country: PL (occurrence: PL)
  Receive Date: 20150828
  Receipt Date: 20160804
  Transmission Date: 20161109
  Serious: Yes (Hospitalization, Other)
  Sender: FDA-Public Use
  Company Number: PL-GLAXOSMITHKLINE-PL2015122189

PATIENT
  Age: 65 Year
  Sex: Male
  Weight: 123 kg

DRUGS (9)
  1. UMECLIDINIUM BR+VILANTEROL TRIFENATATE [Suspect]
     Active Substance: UMECLIDINIUM BROMIDE\VILANTEROL TRIFENATATE
     Indication: CHRONIC OBSTRUCTIVE PULMONARY DISEASE
     Dosage: 1 PUFF(S) (62.5MCG/25MCG), QD
     Route: 055
     Dates: start: 20150813
  2. POLPRIL [Concomitant]
     Active Substance: RAMIPRIL
     Indication: HYPERTENSION
     Dosage: 2.5 MG, QD
     Route: 048
     Dates: start: 20131111
  3. KALIPOZ PROLONGATUM [Concomitant]
     Indication: SUPPLEMENTATION THERAPY
     Dosage: 391 MG, QD
     Route: 048
     Dates: start: 2013, end: 20150821
  4. OPACORDEN [Concomitant]
     Active Substance: AMIODARONE HYDROCHLORIDE
     Indication: ATRIAL FLUTTER
     Dosage: 200 MG, QD
     Route: 048
     Dates: start: 201502, end: 20150821
  5. XARELTO [Concomitant]
     Active Substance: RIVAROXABAN
     Indication: THROMBOSIS PROPHYLAXIS
     Dosage: 20 MG, QD
     Route: 048
     Dates: start: 201502
  6. FUROSEMIDUM [Concomitant]
     Active Substance: FUROSEMIDE
     Indication: HYPERTENSION
     Dosage: 40 MG, 1D
     Route: 048
     Dates: start: 2013, end: 20150901
  7. ESTAZOLAM. [Concomitant]
     Active Substance: ESTAZOLAM
     Indication: SLEEP DISORDER THERAPY
     Dosage: 2 MG, QD
     Route: 048
     Dates: start: 20150822, end: 20150827
  8. BISOCARD [Concomitant]
     Active Substance: BISOPROLOL
     Indication: HYPERTENSION
     Dosage: 2.5 MG, QD
     Route: 048
     Dates: start: 20140415
  9. OPACORDEN [Concomitant]
     Active Substance: AMIODARONE HYDROCHLORIDE
     Indication: ARRHYTHMIA SUPRAVENTRICULAR
     Dosage: 200 MG, QD
     Route: 048
     Dates: start: 20150829

REACTIONS (3)
  - Atrial fibrillation [Recovered/Resolved]
  - Chronic obstructive pulmonary disease [Recovered/Resolved]
  - Cardiac failure chronic [Recovered/Resolved]

NARRATIVE: CASE EVENT DATE: 20150822
